FAERS Safety Report 6746327-X (Version None)
Quarter: 2010Q2

REPORT INFORMATION
  Report Type: 
  Country: None (occurrence: None)
  Receive Date: 20100528
  Receipt Date: 20100519
  Transmission Date: 20101027
  Serious: Yes (Hospitalization)
  Sender: FDA-Public Use
  Company Number: IT-PFIZER INC-2010038639

PATIENT
  Age: 81 Year
  Sex: Female

DRUGS (8)
  1. HALCION [Suspect]
     Dosage: 250 UG, DAILY
     Route: 048
     Dates: start: 20090307, end: 20100307
  2. ATENOLOL [Suspect]
     Dosage: UNK
     Dates: start: 20090307, end: 20100307
  3. LEXOTAN [Suspect]
     Dosage: UNK
     Dates: start: 20090307, end: 20100307
  4. CO-EFFERALGAN [Suspect]
     Dosage: UNK
     Dates: start: 20090307, end: 20100307
  5. AMITRIPTYLINE HCL [Concomitant]
     Dosage: UNK
     Dates: start: 20090307, end: 20100307
  6. ASPIRIN [Concomitant]
     Dosage: 100 MG, UNK
     Route: 048
     Dates: start: 20090307, end: 20100307
  7. ESOMEPRAZOLE [Concomitant]
     Dosage: UNK
     Dates: start: 20090307, end: 20100307
  8. NORVASC [Concomitant]
     Dosage: UNK
     Dates: start: 20090307, end: 20100307

REACTIONS (3)
  - LOSS OF CONSCIOUSNESS [None]
  - SOPOR [None]
  - SYNCOPE [None]
